FAERS Safety Report 6387022-9 (Version None)
Quarter: 2009Q4

REPORT INFORMATION
  Report Type: 
  Country: None (occurrence: None)
  Receive Date: 20091002
  Receipt Date: 20090921
  Transmission Date: 20100525
  Serious: Yes (Other)
  Sender: FDA-Public Use
  Company Number: US-WATSON-2009-07830

PATIENT
  Age: 78 Year
  Sex: Male

DRUGS (1)
  1. HYDRALAZINE (WATSON LABORATORIES) [Suspect]
     Indication: HYPERTENSION

REACTIONS (2)
  - GANGRENE [None]
  - VASCULITIS [None]
